FAERS Safety Report 4696834-9 (Version None)
Quarter: 2005Q2

REPORT INFORMATION
  Report Type: 
  Country: None (occurrence: None)
  Receive Date: 20050622
  Receipt Date: 20050610
  Transmission Date: 20051028
  Serious: Yes (Hospitalization)
  Sender: FDA-Public Use
  Company Number: US-JNJFOC-20050304734

PATIENT
  Sex: Female

DRUGS (22)
  1. REMICADE [Suspect]
     Indication: RHEUMATOID ARTHRITIS
     Route: 042
  2. AMANTADINE HCL [Concomitant]
     Dates: start: 20050202, end: 20050208
  3. AZULFIDINE [Concomitant]
     Dosage: 1000 MG
  4. AZULFIDINE [Concomitant]
  5. FLEXERIL [Concomitant]
  6. LOPRESSOR [Concomitant]
     Dosage: 1/2 QD
  7. NEURONTIN [Concomitant]
  8. DIOVAN HCT [Concomitant]
  9. DIOVAN HCT [Concomitant]
  10. SINGULAIR [Concomitant]
  11. ATROVENT [Concomitant]
  12. TRAZODONE HCL [Concomitant]
  13. DETROL LA [Concomitant]
  14. ULTRAM [Concomitant]
  15. MOBIC [Concomitant]
  16. EVOXAC [Concomitant]
  17. VITAMIN E [Concomitant]
  18. ARAVA [Concomitant]
  19. FOLIC ACID [Concomitant]
  20. CALCIUM GLUCONATE [Concomitant]
  21. NEXIUM [Concomitant]
  22. CENESTIN [Concomitant]

REACTIONS (6)
  - ANAEMIA [None]
  - ANKLE FRACTURE [None]
  - GASTROENTERITIS [None]
  - HIATUS HERNIA [None]
  - HYPERTENSION [None]
  - RHINITIS SEASONAL [None]
